FAERS Safety Report 5527875-7 (Version None)
Quarter: 2007Q4

REPORT INFORMATION
  Report Type: 
  Country: None (occurrence: None)
  Receive Date: 20071123
  Receipt Date: 20071114
  Transmission Date: 20080405
  Serious: Yes (Other)
  Sender: FDA-Public Use
  Company Number: 2007-03632

PATIENT
  Age: 76 Year
  Sex: Female
  Weight: 78 kg

DRUGS (5)
  1. VELCADE [Suspect]
     Indication: MULTIPLE MYELOMA
     Dosage: 2.50 MG, INTRAVENOUS; 2.50, INTRAVENOUS; 1.90 MG, INTRAVENOUS
     Route: 042
     Dates: start: 20070522, end: 20070619
  2. VELCADE [Suspect]
     Indication: MULTIPLE MYELOMA
     Dosage: 2.50 MG, INTRAVENOUS; 2.50, INTRAVENOUS; 1.90 MG, INTRAVENOUS
     Route: 042
     Dates: start: 20070710, end: 20070825
  3. VELCADE [Suspect]
     Indication: MULTIPLE MYELOMA
     Dosage: 2.50 MG, INTRAVENOUS; 2.50, INTRAVENOUS; 1.90 MG, INTRAVENOUS
     Route: 042
     Dates: start: 20070911, end: 20071009
  4. APD (PAMIDRONATE DISOIDUM) [Concomitant]
  5. DEXAMETHASONE TAB [Concomitant]

REACTIONS (1)
  - SUPRAVENTRICULAR TACHYCARDIA [None]
